FAERS Safety Report 15638605 (Version 1)
Quarter: 2018Q4

REPORT INFORMATION
  Report Type: Spontaneous
  Country: US (occurrence: US)
  Receive Date: 20181120
  Receipt Date: 20181120
  Transmission Date: 20190205
  Serious: No
  Sender: FDA-Public Use
  Company Number: US-JNJFOC-20180210474

PATIENT
  Age: 82 Year
  Sex: Female
  Weight: 52 kg

DRUGS (10)
  1. SINEMET [Concomitant]
     Active Substance: CARBIDOPA\LEVODOPA
  2. IMBRUVICA [Suspect]
     Active Substance: IBRUTINIB
     Indication: CHRONIC LYMPHOCYTIC LEUKAEMIA
     Route: 048
     Dates: start: 20161102
  3. REMERON [Concomitant]
     Active Substance: MIRTAZAPINE
  4. COGENTIN [Concomitant]
     Active Substance: BENZTROPINE MESYLATE
  5. BUPROPION. [Concomitant]
     Active Substance: BUPROPION
  6. METOPROLOL. [Concomitant]
     Active Substance: METOPROLOL
  7. BENZTROPINE. [Concomitant]
     Active Substance: BENZTROPINE
  8. MIRTAZAPINE. [Concomitant]
     Active Substance: MIRTAZAPINE
  9. OXYBUTIN [Concomitant]
     Active Substance: OXYBUTYNIN
  10. SEROQUEL [Concomitant]
     Active Substance: QUETIAPINE FUMARATE

REACTIONS (3)
  - Off label use [Unknown]
  - Tooth extraction [Unknown]
  - Incorrect dose administered [Unknown]

NARRATIVE: CASE EVENT DATE: 20161102
